FAERS Safety Report 4901533-1 (Version None)
Quarter: 2006Q1

REPORT INFORMATION
  Report Type: 
  Country: None (occurrence: None)
  Receive Date: 20060206
  Receipt Date: 20050107
  Transmission Date: 20060701
  Serious: Yes (Hospitalization)
  Sender: FDA-Public Use
  Company Number: US-BRISTOL-MYERS SQUIBB COMPANY-12819702

PATIENT
  Age: 67 Year
  Sex: Male
  Weight: 102 kg

DRUGS (6)
  1. TAXOL [Suspect]
     Indication: LUNG NEOPLASM MALIGNANT
     Dosage: INITIAL DOSE: 02-DEC-2004
     Route: 042
     Dates: start: 20041210, end: 20041210
  2. CARBOPLATIN [Concomitant]
     Route: 042
     Dates: start: 20041210, end: 20041210
  3. ALOXI [Concomitant]
     Indication: PREMEDICATION
     Route: 042
     Dates: start: 20041210
  4. DECADRON PHOSPHATE [Concomitant]
     Indication: PREMEDICATION
     Route: 042
     Dates: start: 20041210
  5. BENADRYL [Concomitant]
     Indication: PREMEDICATION
     Route: 042
     Dates: start: 20041210
  6. TAGAMET [Concomitant]
     Indication: PREMEDICATION
     Route: 042
     Dates: start: 20041210

REACTIONS (2)
  - EXTRAVASATION [None]
  - SKIN NECROSIS [None]
